FAERS Safety Report 6543115-4 (Version None)
Quarter: 2010Q1

REPORT INFORMATION
  Report Type: 
  Country: None (occurrence: None)
  Receive Date: 20100120
  Receipt Date: 20100111
  Transmission Date: 20100710
  Serious: Yes (Other)
  Sender: FDA-Public Use
  Company Number: PHEH2009US12593

PATIENT
  Sex: Female
  Weight: 68.934 kg

DRUGS (17)
  1. GLEEVEC [Suspect]
     Indication: CHRONIC MYELOID LEUKAEMIA
     Dosage: 600 MG, DAILY
     Route: 048
     Dates: start: 20050801
  2. GLEEVEC [Suspect]
     Indication: CHROMOSOME ANALYSIS ABNORMAL
     Dosage: 300 MG, QD
     Route: 048
  3. GLEEVEC [Suspect]
     Dosage: 100 MG, QD
     Route: 048
  4. AMITRIPTYLINE [Suspect]
     Dosage: UNK, UNK
     Route: 065
  5. SYNTHROID [Concomitant]
     Dosage: 0.125 MG, QD
  6. VERAPAMIL [Concomitant]
     Dosage: 120 MG, QD
  7. ESTRADIOL [Concomitant]
     Dosage: UNK, TWICE WEEKLY
  8. BIOTIN [Concomitant]
     Dosage: 5 MG, QD
  9. CALCIUM WITH VITAMIN D [Concomitant]
     Dosage: 600 MG, BID
  10. VITAMIN C [Concomitant]
     Dosage: 3000 MG, QD
  11. FEVERFEW [Concomitant]
     Dosage: 380 MG, BID
  12. B12 ^RECIP^ [Concomitant]
     Dosage: 500 MCG, UNK
  13. VITAMIN D [Concomitant]
     Dosage: 400 IU, QD
  14. MULTIVITAMIN ^LAPPE^ [Concomitant]
     Dosage: UNK, DAILY
  15. OMEPRAZOLE [Concomitant]
     Dosage: 20 MG, QD
  16. FEXOFENADINE [Concomitant]
     Dosage: UNK, DAILY
  17. RESTASIS [Concomitant]
     Dosage: UNK, UNK
     Route: 065

REACTIONS (38)
  - ALLODYNIA [None]
  - ANIMAL SCRATCH [None]
  - ANTINUCLEAR ANTIBODY INCREASED [None]
  - AXILLARY MASS [None]
  - BALANCE DISORDER [None]
  - BLISTER [None]
  - BURNING SENSATION [None]
  - COGNITIVE DISORDER [None]
  - DEMYELINATING POLYNEUROPATHY [None]
  - DENERVATION ATROPHY [None]
  - DIARRHOEA [None]
  - DRY EYE [None]
  - GAIT DISTURBANCE [None]
  - GASTROOESOPHAGEAL REFLUX DISEASE [None]
  - HYPOAESTHESIA [None]
  - INJURY [None]
  - LOSS OF PROPRIOCEPTION [None]
  - MEAN CELL VOLUME INCREASED [None]
  - MEMORY IMPAIRMENT [None]
  - MIGRAINE [None]
  - MUSCLE SPASMS [None]
  - MUSCULOSKELETAL PAIN [None]
  - NAUSEA [None]
  - NERVE INJURY [None]
  - NEURALGIA [None]
  - NEUROPATHY PERIPHERAL [None]
  - OEDEMA PERIPHERAL [None]
  - PAIN [None]
  - PARAESTHESIA [None]
  - PERIPHERAL SENSORY NEUROPATHY [None]
  - PSEUDOPORPHYRIA [None]
  - RASH [None]
  - RASH ERYTHEMATOUS [None]
  - SENSORY LOSS [None]
  - SKIN LACERATION [None]
  - SKIN ULCER [None]
  - THYROID CANCER [None]
  - VOMITING [None]
